FAERS Safety Report 7572927-3 (Version None)
Quarter: 2011Q2

REPORT INFORMATION
  Report Type: 
  Country: None (occurrence: None)
  Receive Date: 20110627
  Receipt Date: 20110614
  Transmission Date: 20111010
  Serious: Yes (Hospitalization)
  Sender: FDA-Public Use
  Company Number: US-JNJFOC-20110208359

PATIENT
  Sex: Male
  Weight: 87 kg

DRUGS (31)
  1. TYLENOL-500 [Concomitant]
     Indication: HEADACHE
     Route: 048
     Dates: start: 20000101
  2. AMLODIPINE [Concomitant]
     Indication: BLOOD CHOLESTEROL INCREASED
     Route: 048
     Dates: start: 20090327
  3. AMLODIPINE [Concomitant]
     Indication: HYPERTENSION
     Route: 048
     Dates: start: 20090327
  4. PREDNISONE [Suspect]
     Indication: PROSTATE CANCER METASTATIC
     Route: 048
     Dates: start: 20101014
  5. MAGNESIUM  OXIDE [Concomitant]
     Route: 048
     Dates: start: 20090129, end: 20100331
  6. ABIRATERONE ACETATE [Suspect]
     Route: 048
     Dates: start: 20110307
  7. NORCO [Concomitant]
     Indication: MUSCLE SPASMS
     Dosage: AS NEEDED (PRN) EVERY 4 - 6 HOURS
     Route: 048
     Dates: start: 20091019
  8. NORCO [Concomitant]
     Indication: ARTHRALGIA
     Dosage: AS NEEDED (PRN) EVERY 4 - 6 HOURS
     Route: 048
     Dates: start: 20081007
  9. BYSTOLIC [Concomitant]
     Indication: HYPERTENSION
     Route: 048
     Dates: start: 20090521, end: 20090521
  10. GLYBURIDE [Concomitant]
     Indication: DIABETES MELLITUS
     Route: 048
     Dates: start: 20090402
  11. SIMVASTATIN [Concomitant]
     Indication: BLOOD CHOLESTEROL INCREASED
     Route: 048
     Dates: start: 20091110
  12. KLOR-CON [Concomitant]
     Indication: HYPOKALAEMIA
     Route: 048
     Dates: start: 20110212
  13. ABIRATERONE ACETATE [Suspect]
     Indication: PROSTATE CANCER METASTATIC
     Route: 048
     Dates: start: 20101118, end: 20101208
  14. ABIRATERONE ACETATE [Suspect]
     Route: 048
     Dates: start: 20101020, end: 20101110
  15. METFORMIN HCL [Concomitant]
     Indication: DIABETES MELLITUS
     Route: 048
     Dates: start: 20080916
  16. AMLODIPINE [Concomitant]
     Indication: HYPERTENSIVE HEART DISEASE
     Route: 048
     Dates: start: 20090327
  17. LISINOPRIL AND HYDROCHLOROTHIAZIDE [Concomitant]
     Indication: HYPERTENSIVE HEART DISEASE
     Route: 048
     Dates: start: 20090327
  18. MAGNESIUM  OXIDE [Concomitant]
     Indication: BLOOD MAGNESIUM DECREASED
     Route: 048
     Dates: start: 20110106
  19. KLOR-CON [Concomitant]
     Route: 048
     Dates: start: 20110209, end: 20110211
  20. ABIRATERONE ACETATE [Suspect]
     Route: 048
     Dates: start: 20101223, end: 20110219
  21. NORCO [Concomitant]
     Indication: BACK PAIN
     Dosage: AS NEEDED (PRN) EVERY 4 - 6 HOURS
     Route: 048
     Dates: start: 20091019
  22. IMODIUM [Concomitant]
     Indication: DIARRHOEA
     Dosage: 1 TO 2 TABLETS AS NEEDED
     Route: 048
     Dates: start: 20080801
  23. NORCO [Concomitant]
     Indication: ORAL PAIN
     Dosage: AS NEEDED (PRN) EVERY 4 - 6 HOURS
     Route: 048
     Dates: start: 20091019
  24. LANTUS [Concomitant]
     Indication: DIABETES MELLITUS
     Route: 058
     Dates: start: 20050101
  25. HUMALOG [Concomitant]
     Indication: DIABETES MELLITUS
     Dosage: 3-12 UNITS
     Route: 058
     Dates: start: 20050101, end: 20110219
  26. K- LYTE [Concomitant]
     Indication: HYPOKALAEMIA
     Route: 048
     Dates: start: 20081211, end: 20101110
  27. LISINOPRIL AND HYDROCHLOROTHIAZIDE [Concomitant]
     Indication: HYPERTENSION
     Route: 048
     Dates: start: 20090327
  28. K- LYTE [Concomitant]
     Route: 048
     Dates: start: 20081010
  29. IMODIUM [Concomitant]
     Route: 048
     Dates: start: 20070801
  30. LUPRON [Concomitant]
     Indication: PROSTATE CANCER
     Route: 030
     Dates: start: 20081016
  31. KLOR-CON [Concomitant]
     Route: 048
     Dates: start: 20110106, end: 20110208

REACTIONS (1)
  - HYPOKALAEMIA [None]
